FAERS Safety Report 9925514 (Version 1)
Quarter: 2014Q1

REPORT INFORMATION
  Report Type: Report from Study
  Country: US (occurrence: US)
  Receive Date: 20140226
  Receipt Date: 20140226
  Transmission Date: 20141002
  Serious: Yes (Other)
  Sender: FDA-Public Use
  Company Number: US-ABBVIE-14P-163-1205011-00

PATIENT
  Sex: Female
  Weight: 68.55 kg

DRUGS (8)
  1. HUMIRA [Suspect]
     Indication: COLITIS ULCERATIVE
     Route: 058
     Dates: start: 201302, end: 201302
  2. HUMIRA [Suspect]
     Dates: start: 201302, end: 201302
  3. HUMIRA [Suspect]
     Route: 058
     Dates: start: 2013, end: 201308
  4. HUMIRA [Suspect]
     Route: 058
     Dates: start: 201308, end: 20140208
  5. PREDNISONE [Concomitant]
     Indication: COLITIS ULCERATIVE
     Dates: start: 2012
  6. IMURAN [Concomitant]
     Indication: COLITIS ULCERATIVE
  7. VITAMINS [Concomitant]
     Indication: VITAMIN SUPPLEMENTATION
  8. PAIN MEDICATION [Concomitant]
     Indication: COLITIS ULCERATIVE

REACTIONS (2)
  - Weight decreased [Not Recovered/Not Resolved]
  - Colitis ulcerative [Not Recovered/Not Resolved]
